FAERS Safety Report 7525842-5 (Version None)
Quarter: 2011Q2

REPORT INFORMATION
  Report Type: 
  Country: None (occurrence: None)
  Receive Date: 20110606
  Receipt Date: 20110518
  Transmission Date: 20111010
  Serious: Yes (Hospitalization)
  Sender: FDA-Public Use
  Company Number: A0801781A

PATIENT
  Age: 50 Year
  Sex: Male
  Weight: 136.4 kg

DRUGS (1)
  1. AVANDIA [Suspect]
     Dosage: 8MG PER DAY
     Route: 048
     Dates: start: 20000101

REACTIONS (4)
  - CHEST DISCOMFORT [None]
  - MACULAR OEDEMA [None]
  - MYOCARDIAL INFARCTION [None]
  - CHEST PAIN [None]
